FAERS Safety Report 8545349-6 (Version None)
Quarter: 2012Q3

REPORT INFORMATION
  Report Type: 
  Country: None (occurrence: None)
  Receive Date: 20120727
  Receipt Date: 20120717
  Transmission Date: 20120928
  Serious: Yes (Death)
  Sender: FDA-Public Use
  Company Number: US-OPTIMER-20120098

PATIENT
  Age: 83 Year
  Sex: Female

DRUGS (1)
  1. DIFICID [Suspect]
     Indication: CLOSTRIDIUM DIFFICILE COLITIS
     Dosage: 200 MG, BID
     Route: 048
     Dates: start: 20111129, end: 20111208

REACTIONS (1)
  - NEOPLASM MALIGNANT [None]
